FAERS Safety Report 15700830 (Version 1)
Quarter: 2018Q4

REPORT INFORMATION
  Report Type: Spontaneous
  Country: FR (occurrence: FR)
  Receive Date: 20181207
  Receipt Date: 20181207
  Transmission Date: 20190205
  Serious: Yes (Hospitalization)
  Sender: FDA-Public Use
  Company Number: FR-009507513-1811FRA012285

PATIENT
  Age: 76 Year
  Sex: Female
  Weight: 56 kg

DRUGS (2)
  1. SOLUPRED (PREDNISOLONE SODIUM METAZOATE) [Suspect]
     Active Substance: PREDNISOLONE SODIUM METAZOATE
     Indication: B-CELL LYMPHOMA
     Dosage: 60 MG / DAY FOR 5 CONSECUTIVE DAYS (CYCLES OF 28 DAYS)
     Dates: start: 20180926
  2. TEMODAL [Suspect]
     Active Substance: TEMOZOLOMIDE
     Indication: B-CELL LYMPHOMA
     Dosage: 250 MG / DAY FOR 5 CONSECUTIVE DAYS (CYCLES OF 28 DAYS)
     Route: 048
     Dates: start: 20180926

REACTIONS (4)
  - Anaemia [Unknown]
  - Leukopenia [Unknown]
  - Rectal haemorrhage [Recovered/Resolved]
  - Constipation [Unknown]

NARRATIVE: CASE EVENT DATE: 20181105
